FAERS Safety Report 6984730-3 (Version None)
Quarter: 2010Q3

REPORT INFORMATION
  Report Type: 
  Country: None (occurrence: None)
  Receive Date: 20100915
  Receipt Date: 20100908
  Transmission Date: 20110219
  Serious: Yes (Other)
  Sender: FDA-Public Use
  Company Number: US-ROXANE LABORATORIES, INC.-2010-RO-01198RO

PATIENT
  Age: 87 Year
  Sex: Male

DRUGS (12)
  1. SERTRALINE HYDROCHLORIDE [Suspect]
     Indication: POST-TRAUMATIC STRESS DISORDER
     Dates: start: 19980101
  2. SERTRALINE HYDROCHLORIDE [Suspect]
     Indication: NIGHTMARE
  3. LORAZEPAM [Suspect]
     Indication: POST-TRAUMATIC STRESS DISORDER
  4. LORAZEPAM [Suspect]
     Indication: NIGHTMARE
  5. ZOLPIDEM [Suspect]
     Indication: POST-TRAUMATIC STRESS DISORDER
  6. ZOLPIDEM [Suspect]
     Indication: NIGHTMARE
  7. BUPROPION HCL [Suspect]
     Indication: POST-TRAUMATIC STRESS DISORDER
  8. BUPROPION HCL [Suspect]
     Indication: NIGHTMARE
  9. TEMAZEPAM [Suspect]
     Indication: POST-TRAUMATIC STRESS DISORDER
  10. TEMAZEPAM [Suspect]
     Indication: NIGHTMARE
  11. TRAZODONE HCL [Suspect]
     Indication: POST-TRAUMATIC STRESS DISORDER
  12. TRAZODONE HCL [Suspect]
     Indication: NIGHTMARE

REACTIONS (4)
  - CONTUSION [None]
  - DRUG INEFFECTIVE [None]
  - LACERATION [None]
  - SLEEP DISORDER [None]
